FAERS Safety Report 9498315 (Version 2)
Quarter: 2013Q4

REPORT INFORMATION
  Report Type: Spontaneous
  Country: US (occurrence: US)
  Receive Date: 20130904
  Receipt Date: 20131121
  Transmission Date: 20140711
  Serious: No
  Sender: FDA-Public Use
  Company Number: US-PFIZER INC-2013252657

PATIENT
  Age: 83 Year
  Sex: Male

DRUGS (1)
  1. SUTENT [Suspect]
     Indication: THYROID CANCER
     Dosage: 50 MG, DAILY
     Dates: start: 20130313, end: 20130710

REACTIONS (3)
  - Pleural effusion [Unknown]
  - Off label use [Unknown]
  - Abdominal discomfort [Unknown]
